FAERS Safety Report 6372021-3 (Version None)
Quarter: 2009Q3

REPORT INFORMATION
  Report Type: 
  Country: None (occurrence: None)
  Receive Date: 20090923
  Receipt Date: 20090918
  Transmission Date: 20100115
  Serious: Yes (Other)
  Sender: FDA-Public Use
  Company Number: US-GENENTECH-289906

PATIENT
  Sex: Male
  Weight: 129.5 kg

DRUGS (3)
  1. LUCENTIS [Suspect]
     Indication: MACULAR DEGENERATION
  2. PREVACID [Concomitant]
     Indication: DRUG USE FOR UNKNOWN INDICATION
  3. BENICAR [Concomitant]
     Indication: DRUG USE FOR UNKNOWN INDICATION

REACTIONS (3)
  - EYE IRRITATION [None]
  - MACULAR DEGENERATION [None]
  - MYODESOPSIA [None]
